FAERS Safety Report 13862533 (Version 1)
Quarter: 2017Q3

REPORT INFORMATION
  Report Type: Spontaneous
  Country: US (occurrence: US)
  Receive Date: 20170814
  Receipt Date: 20170814
  Transmission Date: 20171127
  Serious: Yes (Other)
  Sender: FDA-Public Use
  Company Number: US-KADMON PHARMACEUTICALS, LLC-KAD201708-000907

PATIENT
  Age: 64 Year
  Sex: Female

DRUGS (6)
  1. LASIX [Concomitant]
     Active Substance: FUROSEMIDE
  2. TELAPREVIR [Suspect]
     Active Substance: TELAPREVIR
     Dates: start: 20120302
  3. NEUPOGEN [Concomitant]
     Active Substance: FILGRASTIM
  4. PROCRIT [Concomitant]
     Active Substance: ERYTHROPOIETIN
  5. PEG-INTERFERON ALFA-2A [Suspect]
     Active Substance: PEGINTERFERON ALFA-2A
     Dosage: PRE-FILLED SYRINGE
     Dates: start: 20120302
  6. RIBASPHERE [Suspect]
     Active Substance: RIBAVIRIN
     Route: 048
     Dates: start: 20120302

REACTIONS (8)
  - Nausea [Unknown]
  - Oedema [Unknown]
  - Blood pressure increased [Unknown]
  - Muscle rupture [Unknown]
  - White blood cell count decreased [Unknown]
  - Heart rate increased [Unknown]
  - Back pain [Unknown]
  - Anaemia [Unknown]

NARRATIVE: CASE EVENT DATE: 20120423
